FAERS Safety Report 14563007 (Version 1)
Quarter: 2018Q1

REPORT INFORMATION
  Report Type: Spontaneous
  Country: IT (occurrence: IT)
  Receive Date: 20180222
  Receipt Date: 20180222
  Transmission Date: 20180509
  Serious: Yes (Other)
  Sender: FDA-Public Use
  Company Number: IT-PFIZER INC-2017141526

PATIENT
  Age: 26 Year
  Sex: Female

DRUGS (2)
  1. MEDROL [Suspect]
     Active Substance: METHYLPREDNISOLONE
     Indication: MILK ALLERGY
     Dosage: 16 MG, WEEKLY
     Route: 048
  2. OKI [Concomitant]
     Active Substance: KETOPROFEN LYSINE
     Indication: DYSMENORRHOEA
     Dosage: UNK
     Dates: start: 20170207, end: 20170207

REACTIONS (2)
  - Chest pain [Unknown]
  - Abdominal pain upper [Unknown]

NARRATIVE: CASE EVENT DATE: 20170207
